FAERS Safety Report 18873640 (Version 3)
Quarter: 2021Q2

REPORT INFORMATION
  Report Type: Spontaneous
  Country: ES (occurrence: ES)
  Receive Date: 20210210
  Receipt Date: 20210402
  Transmission Date: 20210717
  Serious: Yes (Other)
  Sender: FDA-Public Use
  Company Number: ES-EMD SERONO-9217559

PATIENT
  Age: 51 Year
  Sex: Female

DRUGS (5)
  1. MAVENCLAD [Suspect]
     Active Substance: CLADRIBINE
     Indication: RELAPSING-REMITTING MULTIPLE SCLEROSIS
     Dosage: YEAR ONE MONTH ONE THERAPY
     Route: 048
     Dates: start: 20190128
  2. MAVENCLAD [Suspect]
     Active Substance: CLADRIBINE
     Dosage: YEAR TWO MONTH ONE THERAPY
     Route: 048
     Dates: start: 202007
  3. FINGOLIMOD. [Suspect]
     Active Substance: FINGOLIMOD
     Indication: RELAPSING-REMITTING MULTIPLE SCLEROSIS
     Dates: start: 20150407, end: 201811
  4. MAVENCLAD [Suspect]
     Active Substance: CLADRIBINE
     Dosage: YEAR ONE MONTH TWO THERAPY
     Route: 048
     Dates: start: 201902
  5. MAVENCLAD [Suspect]
     Active Substance: CLADRIBINE
     Dosage: YEAR TWO MONTH TWO THERAPY
     Route: 048
     Dates: start: 202008, end: 20200820

REACTIONS (1)
  - Malignant melanoma [Recovered/Resolved]

NARRATIVE: CASE EVENT DATE: 202007
